FAERS Safety Report 6736686-6 (Version None)
Quarter: 2010Q2

REPORT INFORMATION
  Report Type: 
  Country: None (occurrence: None)
  Receive Date: 20100521
  Receipt Date: 20100511
  Transmission Date: 20101027
  Serious: Yes (Hospitalization)
  Sender: FDA-Public Use
  Company Number: PHHY2009FR17180

PATIENT
  Sex: Male

DRUGS (2)
  1. ERL 080A ERL+TAB [Suspect]
     Indication: RENAL TRANSPLANT
     Dosage: 1440 MG, QD
     Dates: start: 20071121
  2. NEORAL [Suspect]
     Indication: RENAL TRANSPLANT
     Dosage: 275 MG/DAY
     Dates: start: 20071121

REACTIONS (2)
  - PARAESTHESIA [None]
  - TRANSIENT ISCHAEMIC ATTACK [None]
